FAERS Safety Report 19863639 (Version 1)
Quarter: 2021Q3

REPORT INFORMATION
  Report Type: Spontaneous
  Country: US (occurrence: US)
  Receive Date: 20210922
  Receipt Date: 20210922
  Transmission Date: 20211014
  Serious: Yes (Other)
  Sender: FDA-Public Use
  Company Number: US-DRREDDYS-SPO/USA/21/0140182

PATIENT
  Age: 48 Year
  Sex: Female

DRUGS (3)
  1. RISPERIDONE. [Suspect]
     Active Substance: RISPERIDONE
     Dosage: BY THE 14TH DAY OF ADMISSION
     Route: 048
  2. RISPERIDONE. [Suspect]
     Active Substance: RISPERIDONE
     Dosage: GRADUALLY UP TITRATED TO 3MG TWICE DAILY BY DAY 22 AFTER ADMISSION.
     Route: 048
  3. RISPERIDONE. [Suspect]
     Active Substance: RISPERIDONE
     Indication: SCHIZOPHRENIA
     Dosage: GRADUALLY UP TITRATED TO 3MG TWICE DAILY BY DAY 22 AFTER ADMISSION
     Route: 048

REACTIONS (1)
  - Neutropenia [Recovered/Resolved]
